FAERS Safety Report 15838210 (Version 3)
Quarter: 2019Q1

REPORT INFORMATION
  Report Type: Spontaneous
  Country: DE (occurrence: JP)
  Receive Date: 20190117
  Receipt Date: 20190117
  Transmission Date: 20190417
  Serious: Yes (Hospitalization, Other)
  Sender: FDA-Public Use
  Company Number: PHHY2019JP009259

PATIENT
  Age: 66 Year
  Sex: Male

DRUGS (8)
  1. TIARAMIDE HYDROCHLORIDE [Suspect]
     Active Substance: TIARAMIDE HYDROCHLORIDE
     Indication: PERICORONITIS
     Dosage: 300 MG, QD
     Route: 048
  2. REBAMIPIDE [Concomitant]
     Active Substance: REBAMIPIDE
     Indication: PRODUCT USED FOR UNKNOWN INDICATION
     Route: 048
  3. CEFOZOPRAN HYDROCHLORIDE [Concomitant]
     Active Substance: CEFOZOPRAN HYDROCHLORIDE
     Indication: PRODUCT USED FOR UNKNOWN INDICATION
     Dosage: UNK
     Route: 042
  4. PONSTEL [Suspect]
     Active Substance: MEFENAMIC ACID
     Indication: PERICORONITIS
     Dosage: 250 MG, QD
     Route: 048
  5. DICLOFENAC [Suspect]
     Active Substance: DICLOFENAC
     Indication: ILL-DEFINED DISORDER
     Dosage: 50 MG, QD
     Route: 054
  6. PANIPENEM [Concomitant]
     Active Substance: PANIPENEM
     Indication: PRODUCT USED FOR UNKNOWN INDICATION
     Route: 042
  7. LOXOPROFEN SODIUM [Suspect]
     Active Substance: LOXOPROFEN SODIUM
     Indication: PAIN
     Dosage: 180 MG, QD
     Route: 048
  8. LEVOFLOXACIN. [Concomitant]
     Active Substance: LEVOFLOXACIN
     Indication: PRODUCT USED FOR UNKNOWN INDICATION
     Route: 048

REACTIONS (4)
  - Gastrointestinal haemorrhage [Recovering/Resolving]
  - Abscess [Unknown]
  - Gastric ulcer [Recovering/Resolving]
  - Seizure [Unknown]

NARRATIVE: CASE EVENT DATE: 200009
